FAERS Safety Report 7978781-X (Version None)
Quarter: 2011Q4

REPORT INFORMATION
  Report Type: 
  Country: None (occurrence: None)
  Receive Date: 20111214
  Receipt Date: 20111206
  Transmission Date: 20120403
  Serious: Yes (Life-Threatening, Hospitalization, Other)
  Sender: FDA-Public Use
  Company Number: AU-BRISTOL-MYERS SQUIBB COMPANY-15525975

PATIENT
  Age: 58 Year
  Sex: Male
  Weight: 88 kg

DRUGS (10)
  1. TEMAZEPAM [Concomitant]
     Route: 048
  2. ORENCIA [Suspect]
     Indication: RHEUMATOID ARTHRITIS
     Dosage: TOTAL INFUSIONS: 12 LAST DOSE ON 01-FEB-2011
     Route: 042
     Dates: start: 20100406, end: 20110223
  3. PREDNISOLONE [Concomitant]
     Route: 048
  4. DIAZEPAM [Concomitant]
     Route: 048
  5. METHOTREXATE [Concomitant]
     Route: 048
  6. PLAQUENIL [Concomitant]
     Route: 048
  7. CALTRATE + D [Concomitant]
     Route: 048
  8. ACTONEL [Concomitant]
     Route: 048
  9. SALINE [Concomitant]
  10. FOLIC ACID [Concomitant]
     Route: 048

REACTIONS (10)
  - BLOOD PRESSURE INCREASED [None]
  - THROMBOSIS [None]
  - JOINT STIFFNESS [None]
  - PARAESTHESIA [None]
  - OEDEMA PERIPHERAL [None]
  - TRANSIENT ISCHAEMIC ATTACK [None]
  - PRESYNCOPE [None]
  - HEADACHE [None]
  - LETHARGY [None]
  - MIOSIS [None]
